FAERS Safety Report 18468925 (Version 1)
Quarter: 2020Q4

REPORT INFORMATION
  Report Type: Spontaneous
  Country: US (occurrence: US)
  Receive Date: 20201105
  Receipt Date: 20201105
  Transmission Date: 20210114
  Serious: Yes (Hospitalization, Other)
  Sender: FDA-Public Use
  Company Number: None

PATIENT
  Age: 63 Year
  Sex: Male
  Weight: 100.6 kg

DRUGS (1)
  1. CHLORHEXIDINE GLUCONATE ORAL SOLUTION [Suspect]
     Active Substance: CHLORHEXIDINE GLUCONATE
     Indication: ANTIBIOTIC PROPHYLAXIS
     Route: 048
     Dates: start: 20201018, end: 20201029

REACTIONS (3)
  - Burkholderia cepacia complex infection [None]
  - Product contamination microbial [None]
  - Recalled product administered [None]

NARRATIVE: CASE EVENT DATE: 20201026
